FAERS Safety Report 5898861-2 (Version None)
Quarter: 2008Q3

REPORT INFORMATION
  Report Type: 
  Country: None (occurrence: None)
  Receive Date: 20080925
  Receipt Date: 20080917
  Transmission Date: 20090109
  Serious: Yes (Other)
  Sender: FDA-Public Use
  Company Number: AU-JNJFOC-20080902045

PATIENT
  Sex: Male

DRUGS (1)
  1. RISPERDAL [Suspect]
     Indication: SCHIZOPHRENIA
     Dosage: 2MG NOCTE
     Route: 048

REACTIONS (1)
  - THROMBOCYTOPENIA [None]
